FAERS Safety Report 12804207 (Version 2)
Quarter: 2016Q4

REPORT INFORMATION
  Report Type: Spontaneous
  Country: US (occurrence: US)
  Receive Date: 20161003
  Receipt Date: 20161011
  Transmission Date: 20170207
  Serious: Yes (Other)
  Sender: FDA-Public Use
  Company Number: US-TEVA-697939USA

PATIENT
  Sex: Male

DRUGS (1)
  1. NUVIGIL [Suspect]
     Active Substance: ARMODAFINIL
     Route: 065

REACTIONS (4)
  - Amnesia [Unknown]
  - Pruritus [Unknown]
  - Accident [Unknown]
  - Cardiac arrest [Unknown]

NARRATIVE: CASE EVENT DATE: 201107
